FAERS Safety Report 16584922 (Version 3)
Quarter: 2019Q3

REPORT INFORMATION
  Report Type: Spontaneous
  Country: PL (occurrence: PL)
  Receive Date: 20190717
  Receipt Date: 20190820
  Transmission Date: 20191004
  Serious: Yes (Death, Other)
  Sender: FDA-Public Use
  Company Number: PL-MYLANLABS-2019M1066530

PATIENT
  Age: 55 Year
  Sex: Female

DRUGS (30)
  1. DOCETAXEL. [Suspect]
     Active Substance: DOCETAXEL
     Indication: BREAST CANCER FEMALE
     Dosage: 75 MILLIGRAM/SQ. METER, Q3W
     Route: 065
  2. DOXORUBICIN [Suspect]
     Active Substance: DOXORUBICIN
     Indication: METASTASES TO SKIN
     Dosage: 60 MILLIGRAM/SQ. METER, Q3W (4 CYCLES OF PALLIATIVE CHEMOTHERAPY; EVERY 3 WEEKS)
     Route: 065
  3. DOXORUBICIN [Suspect]
     Active Substance: DOXORUBICIN
     Indication: BREAST CANCER METASTATIC
  4. VINORELBINE [Suspect]
     Active Substance: VINORELBINE TARTRATE
     Indication: METASTASES TO SKIN
     Dosage: 120 MILLIGRAM, QW
     Route: 048
  5. VINORELBINE [Suspect]
     Active Substance: VINORELBINE TARTRATE
     Dosage: 40 MG/M2, 3 TIMES PER WEEK
     Route: 048
  6. FULVESTRANT. [Suspect]
     Active Substance: FULVESTRANT
     Indication: METASTASES TO SKIN
     Dosage: UNK UNK, MONTHLY
     Route: 065
  7. CAPECITABINE. [Suspect]
     Active Substance: CAPECITABINE
     Indication: METASTASES TO SKIN
     Dosage: 2000 MILLIGRAM/SQ. METER, Q3W (ON DAYS 1-14; EVERY 3 WEEKS) (METRONOMIC THERAPY)
     Route: 048
  8. DOCETAXEL. [Suspect]
     Active Substance: DOCETAXEL
     Indication: CHEMOTHERAPY
  9. LETROZOLE. [Suspect]
     Active Substance: LETROZOLE
     Indication: HORMONE THERAPY
  10. FULVESTRANT. [Suspect]
     Active Substance: FULVESTRANT
     Indication: BREAST CANCER METASTATIC
  11. CAPECITABINE. [Suspect]
     Active Substance: CAPECITABINE
     Indication: BREAST CANCER METASTATIC
     Dosage: 1500 UNK
     Route: 048
  12. DOXORUBICIN [Suspect]
     Active Substance: DOXORUBICIN
     Indication: BREAST CANCER FEMALE
     Dosage: 50 MILLIGRAM/SQ. METER, Q3W
     Route: 065
  13. VINORELBINE [Suspect]
     Active Substance: VINORELBINE TARTRATE
     Indication: BREAST CANCER METASTATIC
     Dosage: UNK
     Route: 048
  14. FULVESTRANT. [Suspect]
     Active Substance: FULVESTRANT
     Indication: HORMONE THERAPY
  15. ENDOXAN                            /00021102/ [Suspect]
     Active Substance: CYCLOPHOSPHAMIDE
     Indication: BREAST CANCER METASTATIC
     Dosage: 600 MILLIGRAM/SQ. METER, Q3W (4 CYCLES OF PALLIATIVE CHEMOTHERAPY, EVERY 3 WEEKS)
     Route: 065
  16. METHOTREXATE. [Suspect]
     Active Substance: METHOTREXATE
     Indication: BREAST CANCER METASTATIC
     Dosage: 10 MILLIGRAM, QW
     Route: 065
  17. VINORELBINE [Suspect]
     Active Substance: VINORELBINE TARTRATE
     Dosage: 60 MILLIGRAM/SQ. METER, Q3W (ON DAYS 1 AND 8 IN CYCLES; EVERY 3 WEEKS)
     Route: 048
  18. EXEMESTANE. [Suspect]
     Active Substance: EXEMESTANE
     Indication: BREAST CANCER METASTATIC
  19. ENDOXAN                            /00021102/ [Suspect]
     Active Substance: CYCLOPHOSPHAMIDE
     Indication: METASTASES TO SKIN
     Dosage: UNK UNK, QW (METRONOMIC CHEMOTHERAPY)
     Route: 065
  20. METHOTREXATE. [Suspect]
     Active Substance: METHOTREXATE
     Indication: METASTASES TO SKIN
     Dosage: UNK
     Route: 065
  21. LETROZOLE. [Suspect]
     Active Substance: LETROZOLE
     Indication: BREAST CANCER FEMALE
     Dosage: UNK (AFTER THE OPERATION; HORMONE THERAPY)
     Route: 065
  22. PACLITAXEL. [Suspect]
     Active Substance: PACLITAXEL
     Indication: BREAST CANCER METASTATIC
  23. BLEOMYCIN [Suspect]
     Active Substance: BLEOMYCIN SULFATE
     Indication: METASTASES TO SKIN
     Dosage: UNK, Q3MONTHS (THE THERAPY WAS DIVIDED INTO 3 STAGES WITH A TOTAL DURATION OF 3 MONTHS)
     Route: 042
  24. ENDOXAN                            /00021101/ [Suspect]
     Active Substance: CYCLOPHOSPHAMIDE
     Indication: METASTASES TO SKIN
     Dosage: ORAL METRONOMIC THERAPY BASED ON THE VEX REGIMEN; CONTINUOUS DOSING
     Route: 048
  25. CAPECITABINE. [Suspect]
     Active Substance: CAPECITABINE
     Indication: BREAST CANCER
  26. DOXORUBICIN [Suspect]
     Active Substance: DOXORUBICIN
     Indication: CHEMOTHERAPY
  27. LETROZOLE. [Suspect]
     Active Substance: LETROZOLE
     Indication: POSTOPERATIVE CARE
  28. PACLITAXEL. [Suspect]
     Active Substance: PACLITAXEL
     Indication: METASTASES TO SKIN
     Dosage: 80 MILLIGRAM/SQ. METER, QW
     Route: 065
  29. EXEMESTANE. [Suspect]
     Active Substance: EXEMESTANE
     Indication: METASTASES TO SKIN
     Dosage: UNK
     Route: 065
  30. BLEOMYCIN [Suspect]
     Active Substance: BLEOMYCIN SULFATE
     Indication: BREAST CANCER METASTATIC

REACTIONS (7)
  - Haematotoxicity [Unknown]
  - Skin lesion [Not Recovered/Not Resolved]
  - Disease progression [Not Recovered/Not Resolved]
  - Death [Fatal]
  - General physical health deterioration [Unknown]
  - Off label use [Unknown]
  - Infection [Unknown]
